FAERS Safety Report 13689230 (Version 1)
Quarter: 2017Q2

REPORT INFORMATION
  Report Type: Spontaneous
  Country: US (occurrence: US)
  Receive Date: 20170625
  Receipt Date: 20170625
  Transmission Date: 20170830
  Serious: Yes (Disabling)
  Sender: FDA-Public Use
  Company Number: None

PATIENT
  Age: 68 Year
  Sex: Female
  Weight: 50.4 kg

DRUGS (10)
  1. PROGESTERONE. [Concomitant]
     Active Substance: PROGESTERONE
  2. VITAMIN/MINERAL SUPPLEMENT [Concomitant]
  3. L-METHYFOLATE [Concomitant]
  4. GINGER. [Concomitant]
     Active Substance: GINGER
  5. VITAMIN B12 [Concomitant]
     Active Substance: CYANOCOBALAMIN
  6. DIAZEPAM. [Suspect]
     Active Substance: DIAZEPAM
     Indication: PAIN
  7. CLONIDINE. [Concomitant]
     Active Substance: CLONIDINE
  8. DIAZEPAM. [Suspect]
     Active Substance: DIAZEPAM
     Indication: INSOMNIA
  9. DIAZEPAM. [Suspect]
     Active Substance: DIAZEPAM
     Indication: AGITATION
  10. ATENOLOL. [Concomitant]
     Active Substance: ATENOLOL

REACTIONS (29)
  - Hyperhidrosis [None]
  - Throat tightness [None]
  - Dizziness [None]
  - Confusional state [None]
  - Bladder disorder [None]
  - Myalgia [None]
  - Tinnitus [None]
  - Drug abuser [None]
  - Fear [None]
  - Agoraphobia [None]
  - Hallucination [None]
  - Depression [None]
  - Tremor [None]
  - Memory impairment [None]
  - Impaired work ability [None]
  - Gastric disorder [None]
  - Depersonalisation/derealisation disorder [None]
  - Dyskinesia [None]
  - Weight decreased [None]
  - Neuralgia [None]
  - Palpitations [None]
  - Photosensitivity reaction [None]
  - Hyperacusis [None]
  - Nightmare [None]
  - Asthenia [None]
  - Panic attack [None]
  - Anxiety [None]
  - Nausea [None]
  - Muscle spasms [None]

NARRATIVE: CASE EVENT DATE: 20140909
